FAERS Safety Report 22905221 (Version 7)
Quarter: 2024Q4

REPORT INFORMATION
  Report Type: Spontaneous
  Country: JP (occurrence: JP)
  Receive Date: 20230905
  Receipt Date: 20241205
  Transmission Date: 20250115
  Serious: Yes (Death, Hospitalization, Other)
  Sender: BRISTOL-MYERS SQUIBB COMPANY
  Company Number: JP-ONO-2023JP020246

PATIENT
  Age: 9 Decade
  Sex: Male
  Weight: 47.7 kg

DRUGS (7)
  1. OPDIVO [Suspect]
     Active Substance: NIVOLUMAB
     Indication: Squamous cell carcinoma of lung
     Route: 041
     Dates: start: 20230719, end: 20230719
  2. CARBOPLATIN [Suspect]
     Active Substance: CARBOPLATIN
     Indication: Squamous cell carcinoma of lung
     Dosage: 290 MG (AUC 5)
     Dates: start: 20230719, end: 20230719
  3. PACLITAXEL [Suspect]
     Active Substance: PACLITAXEL
     Indication: Squamous cell carcinoma of lung
     Dosage: 280 MG (200MG/M2)
     Dates: start: 20230719, end: 20230719
  4. FENTANYL [Concomitant]
     Active Substance: FENTANYL
     Indication: Cancer pain
     Dosage: (TAPE (INCLUDING POULTICE))?3 MG, EVERYDAY
     Route: 062
     Dates: start: 20230719, end: 20230811
  5. MELOXICAM [Concomitant]
     Active Substance: MELOXICAM
     Indication: Product used for unknown indication
     Dosage: 10 MG, EVERYDAY
     Route: 048
     Dates: start: 20230719, end: 20230811
  6. DAYVIGO [Concomitant]
     Active Substance: LEMBOREXANT
     Indication: Product used for unknown indication
     Route: 048
     Dates: start: 20230719, end: 20230811
  7. ELOBIXIBAT [Concomitant]
     Active Substance: ELOBIXIBAT
     Indication: Product used for unknown indication
     Route: 048
     Dates: start: 20230719, end: 20230811

REACTIONS (6)
  - Cytokine release syndrome [Fatal]
  - Febrile neutropenia [Recovered/Resolved]
  - Sepsis [Fatal]
  - Pyrexia [Unknown]
  - Pneumonia [Recovered/Resolved]
  - Non-small cell lung cancer [Unknown]

NARRATIVE: CASE EVENT DATE: 20230730
